FAERS Safety Report 25233701 (Version 1)
Quarter: 2025Q2

REPORT INFORMATION
  Report Type: Spontaneous
  Country: PL (occurrence: PL)
  Receive Date: 20250424
  Receipt Date: 20250424
  Transmission Date: 20250717
  Serious: Yes (Other)
  Sender: AMGEN
  Company Number: None

PATIENT
  Age: 78 Year
  Sex: Female
  Weight: 92 kg

DRUGS (6)
  1. VECTIBIX [Suspect]
     Active Substance: PANITUMUMAB
     Indication: Colon cancer
     Route: 040
     Dates: start: 20220125
  2. VECTIBIX [Suspect]
     Active Substance: PANITUMUMAB
     Route: 040
     Dates: start: 20220125
  3. VECTIBIX [Suspect]
     Active Substance: PANITUMUMAB
     Route: 040
     Dates: start: 20220125
  4. OXALIPLATIN [Suspect]
     Active Substance: OXALIPLATIN
     Indication: Colon cancer
     Route: 065
     Dates: start: 20220125, end: 20220125
  5. FLUOROURACIL [Suspect]
     Active Substance: FLUOROURACIL
     Indication: Colon cancer
     Route: 040
     Dates: start: 20220125, end: 20220127
  6. FLUOROURACIL [Suspect]
     Active Substance: FLUOROURACIL
     Route: 040
     Dates: start: 20220125, end: 20220126

REACTIONS (2)
  - Renal failure [Recovering/Resolving]
  - Asthenia [Recovering/Resolving]

NARRATIVE: CASE EVENT DATE: 20220208
